FAERS Safety Report 7085271-8 (Version None)
Quarter: 2010Q4

REPORT INFORMATION
  Report Type: 
  Country: None (occurrence: None)
  Receive Date: 20101008
  Receipt Date: 20100201
  Transmission Date: 20110411
  Serious: Yes (Hospitalization)
  Sender: FDA-Public Use
  Company Number: 2010SP006514

PATIENT
  Age: 73 Year
  Sex: Male

DRUGS (2)
  1. TEMODAR [Suspect]
     Indication: PRODUCT USED FOR UNKNOWN INDICATION
  2. THALOMID [Suspect]
     Indication: MALIGNANT MELANOMA
     Dosage: 200 MG;QD;PO
     Route: 048
     Dates: start: 20090629, end: 20090712

REACTIONS (2)
  - ASTHENIA [None]
  - MALAISE [None]
